FAERS Safety Report 6371682-2 (Version None)
Quarter: 2009Q3

REPORT INFORMATION
  Report Type: 
  Country: None (occurrence: None)
  Receive Date: 20090923
  Receipt Date: 20081014
  Transmission Date: 20100115
  Serious: Yes (Other)
  Sender: FDA-Public Use
  Company Number: US-ASTRAZENECA-2008UW12178

PATIENT
  Age: 31 Year
  Sex: Female
  Weight: 106.1 kg

DRUGS (5)
  1. SEROQUEL [Suspect]
     Indication: BIPOLAR DISORDER
     Dosage: 200 TO 300 MG
     Route: 048
     Dates: start: 20050901, end: 20070301
  2. ABILIFY [Concomitant]
     Dates: start: 20070101, end: 20080101
  3. GEODON [Concomitant]
     Dates: start: 20050101
  4. RISPERDAL [Concomitant]
     Dates: start: 20080701
  5. LEXAPRO [Concomitant]
     Dates: start: 20060101, end: 20070101

REACTIONS (5)
  - BLOOD CHOLESTEROL INCREASED [None]
  - DIABETES MELLITUS [None]
  - OBESITY [None]
  - SUICIDE ATTEMPT [None]
  - THYROID DISORDER [None]
